FAERS Safety Report 5558373-2 (Version None)
Quarter: 2007Q4

REPORT INFORMATION
  Report Type: 
  Country: None (occurrence: None)
  Receive Date: 20071214
  Receipt Date: 20071204
  Transmission Date: 20080405
  Serious: Yes (Other)
  Sender: FDA-Public Use
  Company Number: US-PFIZER INC-2007102334

PATIENT
  Sex: Male
  Weight: 75 kg

DRUGS (9)
  1. DILANTIN [Suspect]
     Indication: CONVULSION
  2. DURAGESIC-100 [Concomitant]
  3. PHENOBARBITAL TAB [Concomitant]
  4. POTASSIUM CHLORIDE [Concomitant]
  5. LASIX [Concomitant]
  6. NEURONTIN [Concomitant]
  7. LUMIGAN [Concomitant]
  8. VICODIN [Concomitant]
  9. NEXIUM [Concomitant]

REACTIONS (2)
  - CONVULSION [None]
  - THERAPEUTIC AGENT TOXICITY [None]
